FAERS Safety Report 10234252 (Version 2)
Quarter: 2014Q2

REPORT INFORMATION
  Report Type: Spontaneous
  Country: US (occurrence: US)
  Receive Date: 20140612
  Receipt Date: 20140612
  Transmission Date: 20141212
  Serious: Yes (Death, Hospitalization)
  Sender: FDA-Public Use
  Company Number: US-TMC-CABO-13002998

PATIENT
  Age: 59 Year
  Sex: Male

DRUGS (14)
  1. COMETRIQ [Suspect]
     Indication: THYROID CANCER
     Dosage: 140 MG, QD
     Route: 048
     Dates: start: 20130218, end: 20130306
  2. COMETRIQ [Suspect]
     Dosage: 80 MG,QD
     Route: 048
     Dates: start: 20130320, end: 20130609
  3. COMETRIQ [Suspect]
     Dosage: 80 MG, QD
     Route: 048
     Dates: start: 20130619, end: 20130621
  4. COMETRIQ [Suspect]
     Dosage: 80 MG, QD
     Route: 048
     Dates: start: 201306, end: 20130624
  5. COMETRIQ [Suspect]
     Dosage: 80 MG, QD
     Route: 048
     Dates: start: 20130724
  6. LEVOTHYROXINE [Concomitant]
  7. FENTANYL [Concomitant]
  8. CITALOPRAM [Concomitant]
  9. OXYCODONE [Concomitant]
  10. ZOLPIDEM [Concomitant]
  11. IMODIUM [Concomitant]
  12. NAPROXEN [Concomitant]
  13. COMPAZINE [Concomitant]
  14. OCTREOTIDE [Concomitant]

REACTIONS (5)
  - Death [Fatal]
  - Myocardial infarction [Recovering/Resolving]
  - Decreased appetite [Unknown]
  - Rash pruritic [Unknown]
  - Dysphonia [Unknown]
